FAERS Safety Report 9926144 (Version 1)
Quarter: 2014Q1

REPORT INFORMATION
  Report Type: Spontaneous
  Country: US (occurrence: US)
  Receive Date: 20140226
  Receipt Date: 20140226
  Transmission Date: 20141002
  Serious: No
  Sender: FDA-Public Use
  Company Number: US-VIVUS-2014V1000072

PATIENT
  Age: 87 Year
  Sex: Male
  Weight: 86.26 kg

DRUGS (3)
  1. STENDRA [Suspect]
     Indication: ERECTILE DYSFUNCTION
     Dates: start: 20140120, end: 20140120
  2. MULTIVITAMIN [Concomitant]
  3. ALPHA LIPOIC ACID [Concomitant]

REACTIONS (1)
  - Drug ineffective [Unknown]
